FAERS Safety Report 23813107 (Version 1)
Quarter: 2024Q2

REPORT INFORMATION
  Report Type: Spontaneous
  Country: US (occurrence: US)
  Receive Date: 20240503
  Receipt Date: 20240503
  Transmission Date: 20240716
  Serious: No
  Sender: FDA-Public Use
  Company Number: US-AMNEAL PHARMACEUTICALS-2023-AMRX-04042

PATIENT
  Sex: Female
  Weight: 5.896 kg

DRUGS (1)
  1. VIGABATRIN [Suspect]
     Active Substance: VIGABATRIN
     Indication: Infantile spasms
     Dosage: UNK, BID, DISSOLVE 1 PACKET IN 10 ML OF COLD OR ROOM TEMPERATURE WATER AND GIVE/TAKE 7.5 ML (375 MG)
     Route: 065

REACTIONS (1)
  - Ear infection [Unknown]
